FAERS Safety Report 5087853-1 (Version None)
Quarter: 2006Q3

REPORT INFORMATION
  Report Type: 
  Country: None (occurrence: None)
  Receive Date: 20060821
  Receipt Date: 20060821
  Transmission Date: 20061208
  Serious: Yes (Death)
  Sender: FDA-Public Use
  Company Number: None

PATIENT
  Age: 21 Year
  Sex: Male
  Weight: 102.0593 kg

DRUGS (1)
  1. OXYCONTIN [Suspect]
     Dates: start: 20060107, end: 20060107

REACTIONS (2)
  - ALCOHOL USE [None]
  - DRUG ABUSER [None]
